FAERS Safety Report 4362719-0 (Version None)
Quarter: 2004Q2

REPORT INFORMATION
  Report Type: 
  Country: None (occurrence: None)
  Receive Date: 20040518
  Receipt Date: 20040504
  Transmission Date: 20050107
  Serious: Yes (Death)
  Sender: FDA-Public Use
  Company Number: WAES 0405USA00315

PATIENT
  Sex: Male

DRUGS (4)
  1. MUSTARGEN [Suspect]
     Indication: HODGKIN'S DISEASE
     Dosage: 6 MG/M [2]   IV
     Route: 042
  2. VINCRISTINE SULFATE [Suspect]
     Dosage: 2 MG/M[2]
  3. PREDNISONE [Suspect]
     Indication: HODGKIN'S DISEASE
     Dosage: 40 MG/
  4. PROCARBAZINE [Suspect]
     Indication: HODGKIN'S DISEASE
     Dosage: 80 MG/M [2]

REACTIONS (1)
  - NON-HODGKIN'S LYMPHOMA [None]
